FAERS Safety Report 18753632 (Version 1)
Quarter: 2021Q1

REPORT INFORMATION
  Report Type: Spontaneous
  Country: US (occurrence: US)
  Receive Date: 20210118
  Receipt Date: 20210118
  Transmission Date: 20210419
  Serious: No
  Sender: FDA-Public Use
  Company Number: US-009507513-2101USA008566

PATIENT
  Age: 32 Year
  Sex: Male

DRUGS (2)
  1. CYCLOPHOSPHAMIDE (+) DOXORUBICIN (+) VINCRISTINE SULFATE [Concomitant]
     Active Substance: CYCLOPHOSPHAMIDE\DOXORUBICIN\VINCRISTINE
     Indication: EWING^S SARCOMA
     Dosage: 8 CYCLE
  2. TEMODAR [Suspect]
     Active Substance: TEMOZOLOMIDE
     Indication: EWING^S SARCOMA
     Dosage: 6 CYCLES

REACTIONS (1)
  - Product use in unapproved indication [Unknown]
